FAERS Safety Report 20931006 (Version 5)
Quarter: 2023Q2

REPORT INFORMATION
  Report Type: Spontaneous
  Country: JP (occurrence: JP)
  Receive Date: 20220608
  Receipt Date: 20230421
  Transmission Date: 20230722
  Serious: Yes (Hospitalization, Other)
  Sender: FDA-Public Use
  Company Number: JP-NOVARTISPH-NVSJ2022JP091835

PATIENT
  Age: 46 Year
  Sex: Male

DRUGS (6)
  1. AFINITOR [Suspect]
     Active Substance: EVEROLIMUS
     Indication: Neuroendocrine tumour
     Dosage: UNK
     Route: 048
  2. AFINITOR [Suspect]
     Active Substance: EVEROLIMUS
     Dosage: UNK
     Route: 048
  3. AFINITOR [Suspect]
     Active Substance: EVEROLIMUS
     Dosage: UNK
     Route: 048
  4. LUTATHERA [Suspect]
     Active Substance: LUTETIUM OXODOTREOTIDE LU-177
     Indication: Neuroendocrine tumour
     Dosage: 7.4 GBQ, QD
     Route: 042
     Dates: start: 20220526, end: 20220526
  5. ARGININE\LYSINE [Suspect]
     Active Substance: ARGININE\LYSINE
     Indication: Neuroendocrine tumour
     Dosage: 1000 ML, QD
     Route: 042
     Dates: start: 20220526, end: 20220526
  6. DENOSUMAB [Concomitant]
     Active Substance: DENOSUMAB
     Indication: Product used for unknown indication
     Dosage: UNK
     Route: 065

REACTIONS (9)
  - Back pain [Recovering/Resolving]
  - Pulmonary congestion [Unknown]
  - Dyspnoea [Recovering/Resolving]
  - Metastases to spine [Unknown]
  - Malignant neoplasm progression [Unknown]
  - Vomiting [Recovered/Resolved]
  - Blood pressure increased [Unknown]
  - Product use in unapproved indication [Unknown]
  - Off label use [Unknown]

NARRATIVE: CASE EVENT DATE: 20220527
